FAERS Safety Report 17034730 (Version 1)
Quarter: 2019Q4

REPORT INFORMATION
  Report Type: Spontaneous
  Country: CH (occurrence: CH)
  Receive Date: 20191115
  Receipt Date: 20191115
  Transmission Date: 20200122
  Serious: Yes (Other)
  Sender: FDA-Public Use
  Company Number: CH-INFO-000883

PATIENT
  Age: 13 Year
  Sex: Male

DRUGS (1)
  1. ZOLEDRONIC ACID [Suspect]
     Active Substance: ZOLEDRONIC ACID
     Indication: BONE DENSITY DECREASED
     Route: 041

REACTIONS (8)
  - Off label use [Unknown]
  - Rhabdomyolysis [Recovered/Resolved]
  - Hypocalcaemia [Recovered/Resolved]
  - Nausea [Unknown]
  - Pyrexia [Unknown]
  - Myoglobinuria [Recovered/Resolved]
  - Hypophosphataemia [Recovered/Resolved]
  - Myalgia [Unknown]
